FAERS Safety Report 15538962 (Version 1)
Quarter: 2018Q4

REPORT INFORMATION
  Report Type: Spontaneous
  Country: US (occurrence: US)
  Receive Date: 20181022
  Receipt Date: 20181022
  Transmission Date: 20190205
  Serious: Yes (Death, Hospitalization)
  Sender: FDA-Public Use
  Company Number: US-PFIZER INC-2015023570

PATIENT
  Age: 42 Year
  Sex: Male
  Weight: 78 kg

DRUGS (5)
  1. FENTANYL. [Suspect]
     Active Substance: FENTANYL
     Indication: ABDOMINAL PAIN
     Dosage: 150 MCG/H (AS TWO 75 MCG/H NOVAPLUS_ FENTANYL RESERVOIR PATCHES) WAS STARTED 92 H (3.9 DAYS)
     Route: 062
  2. ALPRAZOLAM. [Concomitant]
     Active Substance: ALPRAZOLAM
     Indication: ANXIETY
     Dosage: 0.25 MG, Q 8 H (AS NEEDED)
     Route: 048
  3. ALPRAZOLAM. [Concomitant]
     Active Substance: ALPRAZOLAM
     Dosage: 0.25 MG, 3X/DAY (8 H AFTER INITIATION OF FENTANYL)
     Route: 048
  4. ONDANSETRON [Concomitant]
     Active Substance: ONDANSETRON
     Dosage: UNK, AT 8.5 H AFTER FENTANYL PATCH PLACEMENT
     Route: 042
  5. HYDROMORPHONE [Concomitant]
     Active Substance: HYDROMORPHONE
     Indication: CANCER PAIN
     Dosage: 1 MG, AT 3, 7, AND 14 H
     Route: 042

REACTIONS (3)
  - Apnoea [Fatal]
  - Drug abuse [Fatal]
  - Cyanosis [Fatal]
